FAERS Safety Report 5507838-8 (Version None)
Quarter: 2007Q4

REPORT INFORMATION
  Report Type: 
  Country: None (occurrence: None)
  Receive Date: 20071106
  Receipt Date: 20071026
  Transmission Date: 20080405
  Serious: Yes (Other)
  Sender: FDA-Public Use
  Company Number: US-ROCHE-521805

PATIENT
  Age: 59 Year
  Sex: Male
  Weight: 96.2 kg

DRUGS (2)
  1. PEGASYS [Suspect]
     Indication: HEPATITIS C
     Dosage: REPORTED AS PEGASYS PRE-FILLED.
     Route: 065
     Dates: start: 20070401, end: 20071001
  2. RIBAVIRIN [Suspect]
     Indication: HEPATITIS C
     Route: 065
     Dates: start: 20070401

REACTIONS (2)
  - COUGH [None]
  - PROSTATE CANCER [None]
